FAERS Safety Report 19183145 (Version 1)
Quarter: 2021Q2

REPORT INFORMATION
  Report Type: Spontaneous
  Country: US (occurrence: US)
  Receive Date: 20210426
  Receipt Date: 20210426
  Transmission Date: 20210717
  Serious: No
  Sender: FDA-Public Use
  Company Number: US-ORGANON-2003USA000132

PATIENT
  Age: 21 Year
  Sex: Female
  Weight: 48.98 kg

DRUGS (3)
  1. NEXPLANON [Suspect]
     Active Substance: ETONOGESTREL
     Dosage: 1 DOSAGE FORM; NON DOMINANT LEFT UPPER ARM OVER THE TRICEPS MUSCLE APPROXIMATELY 8.9 CM FROM THE MED
     Route: 059
     Dates: start: 20210217
  2. NEXPLANON [Suspect]
     Active Substance: ETONOGESTREL
     Dosage: 1 ROD EVERY THREE YEARS
     Dates: start: 20200224, end: 20200224
  3. NEXPLANON [Suspect]
     Active Substance: ETONOGESTREL
     Dosage: 1 IMPLANT
     Route: 059
     Dates: start: 20200224, end: 20210217

REACTIONS (4)
  - Complication of device insertion [Recovered/Resolved]
  - Device expulsion [Not Recovered/Not Resolved]
  - No adverse event [Unknown]
  - Product quality issue [Unknown]

NARRATIVE: CASE EVENT DATE: 20200224
